FAERS Safety Report 12885654 (Version 1)
Quarter: 2016Q4

REPORT INFORMATION
  Report Type: Spontaneous
  Country: FR (occurrence: FR)
  Receive Date: 20161026
  Receipt Date: 20161026
  Transmission Date: 20170207
  Serious: Yes (Hospitalization)
  Sender: FDA-Public Use
  Company Number: FR-SA-2016SA194282

PATIENT
  Age: 50 Year
  Sex: Male

DRUGS (6)
  1. CLOZAPINE. [Suspect]
     Active Substance: CLOZAPINE
     Indication: SUICIDE ATTEMPT
     Route: 048
  2. STILNOX [Suspect]
     Active Substance: ZOLPIDEM TARTRATE
     Indication: SUICIDE ATTEMPT
     Route: 048
  3. DEROXAT [Suspect]
     Active Substance: PAROXETINE HYDROCHLORIDE
     Indication: SUICIDE ATTEMPT
     Dosage: FREQUENCY IS ONCE IN THE MORNING
     Route: 048
  4. DEROXAT [Suspect]
     Active Substance: PAROXETINE HYDROCHLORIDE
     Indication: SUICIDE ATTEMPT
     Dosage: FREQUENCY IS ONCE IN THE MORNING
     Route: 048
     Dates: start: 20160618, end: 20160618
  5. CLOZAPINE. [Suspect]
     Active Substance: CLOZAPINE
     Indication: SUICIDE ATTEMPT
     Route: 048
     Dates: start: 20160618, end: 20160618
  6. STILNOX [Suspect]
     Active Substance: ZOLPIDEM TARTRATE
     Indication: SUICIDE ATTEMPT
     Route: 048
     Dates: start: 20160618, end: 20160618

REACTIONS (4)
  - Loss of consciousness [Recovered/Resolved]
  - Tachypnoea [Recovered/Resolved]
  - Toxicity to various agents [Recovered/Resolved]
  - Sinus tachycardia [Recovered/Resolved]

NARRATIVE: CASE EVENT DATE: 20160618
